FAERS Safety Report 9536366 (Version 1)
Quarter: 2013Q2

REPORT INFORMATION
  Report Type: Spontaneous
  Country: US (occurrence: None)
  Receive Date: 20130517
  Receipt Date: 20130517
  Transmission Date: 20140414
  Serious: No
  Sender: FDA-Public Use
  Company Number: 1000041954

PATIENT
  Age: 58 Year
  Sex: Male

DRUGS (5)
  1. VIIBRYD (VILAZODONE HYDROCHLORIDE) (10 MILLIGRAM, TABLET) [Suspect]
     Indication: DEPRESSION
     Route: 048
     Dates: start: 201212, end: 201212
  2. VIIBRYD [Suspect]
     Indication: DEPRESSION
     Route: 048
     Dates: start: 201301, end: 201301
  3. LORAZEPAM (LORAZEPAM) (LORAZEPAM) [Concomitant]
  4. OMEPRAZOLE (OMEPRAZOLE) (OMEPRAZOLE) [Concomitant]
  5. MODAFINIL (MODAFINIL)  (MODAFINIL) [Concomitant]

REACTIONS (5)
  - Somnolence [None]
  - Headache [None]
  - Apathy [None]
  - Anxiety [None]
  - Terminal insomnia [None]
